FAERS Safety Report 4877299-0 (Version None)
Quarter: 2006Q1

REPORT INFORMATION
  Report Type: 
  Country: None (occurrence: None)
  Receive Date: 20060109
  Receipt Date: 20051227
  Transmission Date: 20060701
  Serious: Yes (Hospitalization)
  Sender: FDA-Public Use
  Company Number: 2005-BP-21839RO

PATIENT
  Age: 24 Year
  Sex: Female

DRUGS (6)
  1. METHOTREXATE [Suspect]
     Dosage: 20 MG PER WEEK (NR), PO
     Route: 048
  2. FOLIC ACID [Concomitant]
  3. LORATADINE [Concomitant]
  4. PREDNISOLONE [Concomitant]
  5. ALENDRONATE (ALENDRONATE SODIUM) [Concomitant]
  6. CO-PROXAMOL (DI-GESIC) [Concomitant]

REACTIONS (4)
  - EPISTAXIS [None]
  - HAEMORRHAGE [None]
  - PANCYTOPENIA [None]
  - PURPURA [None]
